FAERS Safety Report 7321394-3 (Version None)
Quarter: 2011Q1

REPORT INFORMATION
  Report Type: 
  Country: None (occurrence: None)
  Receive Date: 20110228
  Receipt Date: 20110201
  Transmission Date: 20110831
  Serious: No
  Sender: FDA-Public Use
  Company Number: US-B.I. PHARMACEUTICALS,INC./RIDGEFIELD-2011-BP-03194BP

PATIENT
  Sex: Male

DRUGS (9)
  1. FLUOXETINE [Concomitant]
     Indication: NERVOUSNESS
  2. PRADAXA [Suspect]
     Indication: ATRIAL FIBRILLATION
     Dosage: 300 MG
     Route: 048
     Dates: start: 20110101
  3. ASA [Concomitant]
     Indication: PROPHYLAXIS
     Dosage: 81 MG
  4. DOXAZOSIN [Concomitant]
     Indication: PROSTATIC DISORDER
     Dosage: 4 MG
  5. LIPITOR [Concomitant]
     Indication: BLOOD CHOLESTEROL INCREASED
     Dosage: 80 MG
  6. LOPRESSOR [Concomitant]
     Indication: HYPERTENSION
     Dosage: 100 MG
  7. VITAMIN TAB [Concomitant]
     Indication: PROPHYLAXIS
  8. OMEPRAZOLE [Concomitant]
     Indication: BARRETT'S OESOPHAGUS
     Dosage: 20 MG
  9. FISH OIL [Concomitant]
     Indication: PROPHYLAXIS

REACTIONS (2)
  - BLEEDING TIME PROLONGED [None]
  - WOUND HAEMORRHAGE [None]
